FAERS Safety Report 10289973 (Version 1)
Quarter: 2014Q3

REPORT INFORMATION
  Report Type: Spontaneous
  Country: US (occurrence: None)
  Receive Date: 20140707
  Receipt Date: 20140707
  Transmission Date: 20150326
  Serious: Yes (Hospitalization)
  Sender: FDA-Public Use
  Company Number: None

PATIENT
  Age: 68 Year
  Sex: Female
  Weight: 60.3 kg

DRUGS (1)
  1. CISPLATIN. [Suspect]
     Active Substance: CISPLATIN
     Dosage: 1ST DOSE AT 100MG/MM?2ND DOSE AT 80MG/MM

REACTIONS (6)
  - Neurotoxicity [None]
  - Fluid intake reduced [None]
  - Hypophagia [None]
  - Weight decreased [None]
  - Vomiting [None]
  - Neuropathy peripheral [None]

NARRATIVE: CASE EVENT DATE: 20140621
